FAERS Safety Report 4715415-1 (Version None)
Quarter: 2005Q3

REPORT INFORMATION
  Report Type: 
  Country: None (occurrence: None)
  Receive Date: 20050715
  Receipt Date: 20050715
  Transmission Date: 20060218
  Serious: Yes (Other)
  Sender: FDA-Public Use
  Company Number: None

PATIENT
  Age: 92 Year
  Sex: Female
  Weight: 68.0396 kg

DRUGS (6)
  1. CIPRO [Suspect]
     Indication: DRUG THERAPY
     Dosage: 200 MG IVPB Q 12 WAS ON 400 MG Q 12
     Route: 042
     Dates: start: 20050630, end: 20050702
  2. CIPRO [Suspect]
     Indication: DRUG THERAPY
     Dosage: 200 MG IVPB Q 12 WAS ON 400 MG Q 12
     Route: 042
     Dates: start: 20050702, end: 20050703
  3. PROTONIX [Concomitant]
  4. CARAFATE [Concomitant]
  5. LASIX [Concomitant]
  6. BLOOD PRODUCTS [Concomitant]

REACTIONS (1)
  - GASTROINTESTINAL HAEMORRHAGE [None]
